FAERS Safety Report 4262241-6 (Version None)
Quarter: 2004Q1

REPORT INFORMATION
  Report Type: 
  Country: None (occurrence: None)
  Receive Date: 20040102
  Receipt Date: 20031222
  Transmission Date: 20041129
  Serious: Yes (Other)
  Sender: FDA-Public Use
  Company Number: PHBS2003JP14444

PATIENT
  Sex: Female

DRUGS (9)
  1. VOLTAREN [Suspect]
     Dosage: 50 MG/DAY
     Route: 054
     Dates: start: 19990927, end: 19990927
  2. VOLTAREN [Suspect]
     Dosage: 25 MG/DAY
     Route: 054
     Dates: start: 19990928, end: 19990928
  3. VOLTAREN [Suspect]
     Dosage: 50 MG/DAY
     Route: 054
     Dates: start: 19990929, end: 19990929
  4. RITODRINE HCL IN DEXTROSE 5% IN PLASTIC CONTAINER [Concomitant]
     Indication: PREMATURE LABOUR
     Dates: start: 19990927, end: 19990927
  5. SOLULACT [Concomitant]
     Dosage: 500 ML/DAY
     Dates: start: 19990929, end: 19990929
  6. RINDERON [Concomitant]
     Dates: start: 19990929, end: 19990929
  7. PENTAGIN [Concomitant]
     Dosage: 15 MG/DAY
     Route: 048
     Dates: start: 19990929, end: 19990929
  8. ATARAX [Concomitant]
     Dosage: 50 MG/DAY
     Route: 048
     Dates: start: 19990929, end: 19990929
  9. NAUZELIN [Concomitant]
     Dosage: 60 MG/DAY
     Route: 048
     Dates: start: 19990929, end: 19990929

REACTIONS (4)
  - DRUG EXPOSURE DURING PREGNANCY [None]
  - INTRA-UTERINE DEATH [None]
  - PREMATURE SEPARATION OF PLACENTA [None]
  - SHOCK [None]
